FAERS Safety Report 23764949 (Version 2)
Quarter: 2024Q2

REPORT INFORMATION
  Report Type: Spontaneous
  Country: US (occurrence: None)
  Receive Date: 20240420
  Receipt Date: 20240604
  Transmission Date: 20240716
  Serious: No
  Sender: FDA-Public Use
  Company Number: 2024A085852

PATIENT
  Age: 968 Month
  Sex: Female

DRUGS (1)
  1. BUDESONIDE\FORMOTEROL FUMARATE DIHYDRATE [Suspect]
     Active Substance: BUDESONIDE\FORMOTEROL FUMARATE DIHYDRATE
     Indication: Bronchiectasis
     Dosage: 160 UG, TWO TIMES A DAY
     Route: 055
     Dates: start: 202312

REACTIONS (5)
  - Oropharyngeal discomfort [Not Recovered/Not Resolved]
  - Product dose omission issue [Recovered/Resolved]
  - Wrong technique in device usage process [Recovered/Resolved]
  - Device use issue [Unknown]
  - Product packaging quantity issue [Unknown]

NARRATIVE: CASE EVENT DATE: 20231201
